FAERS Safety Report 23832719 (Version 2)
Quarter: 2025Q1

REPORT INFORMATION
  Report Type: Spontaneous
  Country: US (occurrence: US)
  Receive Date: 20240508
  Receipt Date: 20250328
  Transmission Date: 20250409
  Serious: No
  Sender: SANOFI AVENTIS
  Company Number: US-SA-SAC20240430000317

PATIENT
  Age: 61 Year
  Sex: Female

DRUGS (14)
  1. DUPIXENT [Suspect]
     Active Substance: DUPILUMAB
     Indication: Eczema
     Dosage: 300MG QOW
     Route: 058
  2. DUPIXENT [Suspect]
     Active Substance: DUPILUMAB
     Indication: Dermatitis atopic
  3. LEVOTHYROXINE [Concomitant]
     Active Substance: LEVOTHYROXINE
  4. ROSUVASTATIN [Concomitant]
     Active Substance: ROSUVASTATIN
  5. METOPROLOL SUCCINATE [Concomitant]
     Active Substance: METOPROLOL SUCCINATE
  6. MAGNESIUM OXIDE [Concomitant]
     Active Substance: MAGNESIUM OXIDE
  7. FUROSEMIDE [Concomitant]
     Active Substance: FUROSEMIDE
  8. IRON [Concomitant]
     Active Substance: IRON
  9. ASPIRIN [Concomitant]
     Active Substance: ASPIRIN
  10. SPIRONOLACTONE [Concomitant]
     Active Substance: SPIRONOLACTONE
  11. FARXIGA [Concomitant]
     Active Substance: DAPAGLIFLOZIN PROPANEDIOL
  12. ENTRESTO [Concomitant]
     Active Substance: SACUBITRIL\VALSARTAN
  13. ELIQUIS [Concomitant]
     Active Substance: APIXABAN
  14. TOUJEO MAX [Concomitant]
     Active Substance: INSULIN GLARGINE

REACTIONS (4)
  - Skin haemorrhage [Unknown]
  - Dry skin [Unknown]
  - Cyst [Unknown]
  - Pruritus [Unknown]
